FAERS Safety Report 20146405 (Version 1)
Quarter: 2021Q4

REPORT INFORMATION
  Report Type: Spontaneous
  Country: US (occurrence: US)
  Receive Date: 20211203
  Receipt Date: 20211203
  Transmission Date: 20220304
  Serious: No
  Sender: FDA-Public Use
  Company Number: US-BIOMARINAP-US-2021-139745

PATIENT
  Sex: Male
  Weight: 104.31 kg

DRUGS (7)
  1. PALYNZIQ [Suspect]
     Active Substance: PEGVALIASE-PQPZ
     Indication: Phenylketonuria
     Dosage: 40 MILLIGRAM, QD
     Route: 058
  2. Cold + flu [Concomitant]
     Indication: Product used for unknown indication
     Dosage: UNK
  3. THERA ZINC ELDERBERRY [Concomitant]
     Indication: Product used for unknown indication
  4. THERA ZINC ELDERBERRY [Concomitant]
     Indication: Product used for unknown indication
  5. VITAMINS [Concomitant]
     Active Substance: VITAMINS
     Indication: Product used for unknown indication
  6. VITAMINS [Concomitant]
     Active Substance: VITAMINS
     Indication: Product used for unknown indication
  7. EPIPEN [Concomitant]
     Active Substance: EPINEPHRINE
     Indication: Product used for unknown indication

REACTIONS (10)
  - Influenza like illness [Unknown]
  - Pyrexia [Recovered/Resolved]
  - Chills [Unknown]
  - Fatigue [Unknown]
  - Insomnia [Unknown]
  - Headache [Unknown]
  - Pulmonary congestion [Unknown]
  - Nasal congestion [Unknown]
  - Cough [Unknown]
  - Amino acid level decreased [Unknown]
